FAERS Safety Report 6259234 (Version 3)
Quarter: 2013Q4

REPORT INFORMATION
  Report Type: Spontaneous
  Country: US (occurrence: US)
  Receive Date: 20070312
  Receipt Date: 20131217
  Transmission Date: 20140711
  Serious: Yes (Congenital Anomaly)
  Sender: FDA-Public Use
  Company Number: US-GLAXOSMITHKLINE-A0642442B

PATIENT
  Sex: Male

DRUGS (4)
  1. PAXIL [Suspect]
     Indication: MAJOR DEPRESSION
     Dosage: 20MG PER DAY
     Route: 064
     Dates: start: 1997
  2. PAROXETINE HYDROCHLORIDE [Suspect]
     Indication: MAJOR DEPRESSION
     Route: 064
  3. ZOFRAN [Concomitant]
     Route: 064
  4. PRENATAL VITAMIN [Concomitant]
     Route: 064

REACTIONS (5)
  - Truncus arteriosus persistent [Unknown]
  - Fallot^s tetralogy [Unknown]
  - Lung disorder [Unknown]
  - Single functional kidney [Unknown]
  - Foetal exposure during pregnancy [Unknown]
